FAERS Safety Report 23183299 (Version 1)
Quarter: 2023Q4

REPORT INFORMATION
  Report Type: Spontaneous
  Country: IN (occurrence: IN)
  Receive Date: 20231114
  Receipt Date: 20231114
  Transmission Date: 20240110
  Serious: Yes (Life-Threatening, Hospitalization)
  Sender: FDA-Public Use
  Company Number: IN-STRIDES ARCOLAB LIMITED-2023SP016847

PATIENT
  Age: 69 Year
  Sex: Female

DRUGS (1)
  1. LOSARTAN [Suspect]
     Active Substance: LOSARTAN
     Indication: Hypertension
     Dosage: 50 MILLIGRAM/DAY IN EVERY EVENING; PER DAY
     Route: 048

REACTIONS (2)
  - Acute respiratory failure [Recovered/Resolved]
  - Angioedema [Recovered/Resolved]
